FAERS Safety Report 21130053 (Version 1)
Quarter: 2022Q3

REPORT INFORMATION
  Report Type: Spontaneous
  Country: NL (occurrence: NL)
  Receive Date: 20220726
  Receipt Date: 20220726
  Transmission Date: 20221027
  Serious: Yes (Other)
  Sender: FDA-Public Use
  Company Number: NL-SUN PHARMACEUTICAL INDUSTRIES LTD-2022R1-345442

PATIENT
  Age: 64 Year
  Sex: Female

DRUGS (2)
  1. PREDNISONE [Suspect]
     Active Substance: PREDNISONE
     Indication: Product used for unknown indication
     Dosage: UNK UNK, DAILY
     Route: 065
  2. BENRALIZUMAB [Suspect]
     Active Substance: BENRALIZUMAB
     Indication: Asthma
     Dosage: UNK
     Route: 065

REACTIONS (1)
  - Eosinopenia [Unknown]
